FAERS Safety Report 8388583-0 (Version None)
Quarter: 2012Q2

REPORT INFORMATION
  Report Type: 
  Country: None (occurrence: None)
  Receive Date: 20120525
  Receipt Date: 20120521
  Transmission Date: 20120825
  Serious: Yes (Death)
  Sender: FDA-Public Use
  Company Number: NL-AMGEN-FRASP2011020456

PATIENT
  Age: 60 Year
  Sex: Male
  Weight: 69 kg

DRUGS (4)
  1. NPLATE [Suspect]
     Dosage: 250 MUG, QWK
  2. ANTINEOPLASTIC AGENTS [Concomitant]
  3. NPLATE [Suspect]
     Indication: THROMBOCYTOPENIA
     Dosage: 150 MUG, QWK
     Dates: start: 20110107
  4. NPLATE [Suspect]
     Dosage: 350 MUG, QWK

REACTIONS (4)
  - OEDEMA PERIPHERAL [None]
  - PYREXIA [None]
  - APLASIA [None]
  - DYSPNOEA [None]
